FAERS Safety Report 6266700-6 (Version None)
Quarter: 2009Q3

REPORT INFORMATION
  Report Type: 
  Country: None (occurrence: None)
  Receive Date: 20090714
  Receipt Date: 20070604
  Transmission Date: 20100115
  Serious: Yes (Other)
  Sender: FDA-Public Use
  Company Number: US-ASTRAZENECA-2006UW04355

PATIENT
  Age: 506 Month
  Sex: Male
  Weight: 85.3 kg

DRUGS (25)
  1. SEROQUEL [Suspect]
     Indication: DEPRESSION
     Dosage: 25-600MG
     Route: 048
     Dates: start: 20021028
  2. SEROQUEL [Suspect]
     Indication: ANXIETY
     Dosage: 25-600MG
     Route: 048
     Dates: start: 20021028
  3. SEROQUEL [Suspect]
     Indication: BIPOLAR DISORDER
     Dosage: 25-600MG
     Route: 048
     Dates: start: 20021028
  4. SEROQUEL [Suspect]
     Indication: SLEEP DISORDER
     Dosage: 25-600MG
     Route: 048
     Dates: start: 20021028
  5. SEROQUEL [Suspect]
     Indication: SCHIZOPHRENIA
     Dosage: 25-600MG
     Route: 048
     Dates: start: 20021028
  6. SEROQUEL [Suspect]
     Dosage: 100 MG TO 600 MG
     Route: 048
     Dates: start: 20021201, end: 20051001
  7. SEROQUEL [Suspect]
     Dosage: 100 MG TO 600 MG
     Route: 048
     Dates: start: 20021201, end: 20051001
  8. SEROQUEL [Suspect]
     Dosage: 100 MG TO 600 MG
     Route: 048
     Dates: start: 20021201, end: 20051001
  9. SEROQUEL [Suspect]
     Dosage: 100 MG TO 600 MG
     Route: 048
     Dates: start: 20021201, end: 20051001
  10. SEROQUEL [Suspect]
     Dosage: 100 MG TO 600 MG
     Route: 048
     Dates: start: 20021201, end: 20051001
  11. GEODON [Concomitant]
     Dates: start: 20030701, end: 20030901
  12. METFORMIN HCL [Concomitant]
  13. GLYBURIDE [Concomitant]
  14. AMITRIPTYLINE [Concomitant]
  15. IBUPROFEN [Concomitant]
  16. EFFEXOR [Concomitant]
  17. TRAZODONE [Concomitant]
  18. NEURONTIN [Concomitant]
  19. DEPAKOTE [Concomitant]
  20. PAXIL [Concomitant]
  21. VIAGRA [Concomitant]
  22. KENALOG [Concomitant]
  23. CYMBALTA [Concomitant]
  24. PREDNISOLONE [Concomitant]
  25. TYLENOL [Concomitant]

REACTIONS (5)
  - BLOOD CHOLESTEROL INCREASED [None]
  - BLOOD TRIGLYCERIDES INCREASED [None]
  - DIABETES MELLITUS [None]
  - DIABETIC NEUROPATHY [None]
  - DIABETIC RETINAL OEDEMA [None]
